FAERS Safety Report 15864377 (Version 1)
Quarter: 2019Q1

REPORT INFORMATION
  Report Type: Other
  Country: AU (occurrence: FR)
  Receive Date: 20190124
  Receipt Date: 20190124
  Transmission Date: 20190417
  Serious: Yes (Other)
  Sender: FDA-Public Use
  Company Number: FR-LEADING PHARMA, LLC-2061722

PATIENT
  Age: 83 Year
  Sex: Female

DRUGS (1)
  1. FUROSEMIDE. [Suspect]
     Active Substance: FUROSEMIDE

REACTIONS (1)
  - Hepatitis [Recovering/Resolving]
